FAERS Safety Report 4530513-3 (Version None)
Quarter: 2004Q4

REPORT INFORMATION
  Report Type: 
  Country: None (occurrence: None)
  Receive Date: 20041216
  Receipt Date: 20041130
  Transmission Date: 20050328
  Serious: Yes (Hospitalization)
  Sender: FDA-Public Use
  Company Number: F01200403845

PATIENT
  Age: 79 Year
  Sex: Male

DRUGS (2)
  1. LEUPROLIDE ACETATE [Suspect]
     Indication: PROSTATE CANCER
     Dosage: 22.5 MG Q3M; SUBCUTANEOUS
     Route: 058
     Dates: start: 20040820, end: 20040820
  2. SUSPENSION - 22.5 MG [Suspect]
     Dosage: 22.5MG Q3M
     Dates: start: 20041119, end: 20041119

REACTIONS (1)
  - MUSCLE CRAMP [None]
